FAERS Safety Report 16509094 (Version 1)
Quarter: 2019Q3

REPORT INFORMATION
  Report Type: Spontaneous
  Country: US (occurrence: US)
  Receive Date: 20190702
  Receipt Date: 20190702
  Transmission Date: 20191004
  Serious: Yes (Hospitalization)
  Sender: FDA-Public Use
  Company Number: US-ROCHE-2343521

PATIENT
  Sex: Female

DRUGS (7)
  1. ALECENSA [Suspect]
     Active Substance: ALECTINIB HYDROCHLORIDE
     Indication: LUNG NEOPLASM MALIGNANT
     Dosage: ONGOING: YES
     Route: 048
     Dates: start: 20181219
  2. ALPRAZOLAM. [Concomitant]
     Active Substance: ALPRAZOLAM
  3. TYLENOL [Concomitant]
     Active Substance: ACETAMINOPHEN
  4. ELIQUIS [Concomitant]
     Active Substance: APIXABAN
  5. NYSTOP [Concomitant]
     Active Substance: NYSTATIN
  6. OFLOXACIN. [Concomitant]
     Active Substance: OFLOXACIN
  7. ZYRTEC [Concomitant]
     Active Substance: CETIRIZINE HYDROCHLORIDE

REACTIONS (8)
  - Thrombosis [Unknown]
  - Diarrhoea [Unknown]
  - Swelling [Unknown]
  - Pulmonary embolism [Unknown]
  - Pain [Unknown]
  - Muscle spasms [Unknown]
  - Fluid retention [Unknown]
  - Headache [Unknown]
